FAERS Safety Report 21832100 (Version 1)
Quarter: 2023Q1

REPORT INFORMATION
  Report Type: Spontaneous
  Country: US (occurrence: None)
  Receive Date: 20230106
  Receipt Date: 20230106
  Transmission Date: 20230417
  Serious: Yes (Other)
  Sender: FDA-Public Use
  Company Number: None

PATIENT
  Age: 36 Year
  Sex: Male
  Weight: 65.7 kg

DRUGS (1)
  1. ICY HOT MEDICATED [Suspect]
     Active Substance: MENTHOL
     Indication: Back pain
     Dosage: FREQUENCY : AS NEEDED;?
     Route: 062

REACTIONS (4)
  - Application site rash [None]
  - Application site burn [None]
  - Application site vesicles [None]
  - Burns third degree [None]

NARRATIVE: CASE EVENT DATE: 20230101
